FAERS Safety Report 5316063-5 (Version None)
Quarter: 2007Q2

REPORT INFORMATION
  Report Type: 
  Country: None (occurrence: None)
  Receive Date: 20070503
  Receipt Date: 20070425
  Transmission Date: 20071010
  Serious: Yes (Hospitalization, Other)
  Sender: FDA-Public Use
  Company Number: US-ELI_LILLY_AND_COMPANY-US200703001939

PATIENT
  Age: 55 Year
  Sex: Female

DRUGS (1)
  1. HUMULIN 70/30 [Suspect]
     Dosage: UNK, UNK

REACTIONS (5)
  - INTERVERTEBRAL DISC DISORDER [None]
  - NERVE INJURY [None]
  - OSTEOARTHRITIS [None]
  - PERONEAL NERVE PALSY [None]
  - SPINAL FUSION SURGERY [None]
